FAERS Safety Report 25567570 (Version 2)
Quarter: 2025Q3

REPORT INFORMATION
  Report Type: Spontaneous
  Country: KR (occurrence: KR)
  Receive Date: 20250716
  Receipt Date: 20250718
  Transmission Date: 20251021
  Serious: Yes (Death)
  Sender: ELI LILLY AND COMPANY
  Company Number: KR-ELI_LILLY_AND_COMPANY-KR202507011604

PATIENT
  Age: 65 Year
  Sex: Female

DRUGS (33)
  1. CYRAMZA [Suspect]
     Active Substance: RAMUCIRUMAB
     Indication: Product used for unknown indication
     Dates: start: 20250205
  2. CYRAMZA [Suspect]
     Active Substance: RAMUCIRUMAB
     Route: 065
     Dates: start: 20250301
  3. CYRAMZA [Suspect]
     Active Substance: RAMUCIRUMAB
     Route: 065
     Dates: start: 20250327
  4. CYRAMZA [Suspect]
     Active Substance: RAMUCIRUMAB
     Route: 065
     Dates: start: 20250425
  5. CYRAMZA [Suspect]
     Active Substance: RAMUCIRUMAB
     Route: 065
     Dates: start: 20250524
  6. ITOPRIDE [Concomitant]
     Active Substance: ITOPRIDE
     Indication: Product used for unknown indication
  7. YUHAN DEXAMETHASONE DISODIUM PHOSPHATE [Concomitant]
     Indication: Product used for unknown indication
  8. LANSOPRAZOLE [Concomitant]
     Active Substance: LANSOPRAZOLE
     Indication: Product used for unknown indication
     Dosage: 15 MG, DAILY
  9. LANSOPRAZOLE [Concomitant]
     Active Substance: LANSOPRAZOLE
     Dosage: 15 MG, DAILY
  10. LANSOPRAZOLE [Concomitant]
     Active Substance: LANSOPRAZOLE
     Dosage: 15 MG, DAILY
  11. CETAMADOL [Concomitant]
     Indication: Product used for unknown indication
  12. PENIRAMIN [Concomitant]
     Indication: Product used for unknown indication
  13. DOCETAXEL [Concomitant]
     Active Substance: DOCETAXEL
     Indication: Product used for unknown indication
  14. CALCIUM CARBONATE\CHOLECALCIFEROL [Concomitant]
     Active Substance: CALCIUM CARBONATE\CHOLECALCIFEROL
     Indication: Product used for unknown indication
  15. OXYCODONE HYDROCHLORIDE [Concomitant]
     Active Substance: OXYCODONE HYDROCHLORIDE
     Indication: Product used for unknown indication
  16. FENTADUR [Concomitant]
     Indication: Product used for unknown indication
  17. MACPERAN [METOCLOPRAMIDE HYDROCHLORIDE] [Concomitant]
     Indication: Product used for unknown indication
  18. ISOTRETINOIN [Concomitant]
     Active Substance: ISOTRETINOIN
     Indication: Product used for unknown indication
  19. DUROC [Concomitant]
     Indication: Product used for unknown indication
  20. SINIL FOLIC ACID [Concomitant]
     Indication: Product used for unknown indication
  21. MAGNESIUM OXIDE [Concomitant]
     Active Substance: MAGNESIUM OXIDE
     Indication: Product used for unknown indication
  22. ALOXI [Concomitant]
     Active Substance: PALONOSETRON HYDROCHLORIDE
     Indication: Product used for unknown indication
  23. DONG A GASTER [Concomitant]
     Indication: Product used for unknown indication
  24. GASOCOL [Concomitant]
     Indication: Product used for unknown indication
  25. BENOCAINE [Concomitant]
     Indication: Product used for unknown indication
  26. HERBALS [Concomitant]
     Active Substance: HERBALS
     Indication: Product used for unknown indication
  27. FEXUCLUE [Concomitant]
     Indication: Product used for unknown indication
  28. ALPIT [Concomitant]
     Indication: Product used for unknown indication
  29. BUKWANG MIDAZOLAM [Concomitant]
     Indication: Product used for unknown indication
  30. HANA PETHIDINE HCL [Concomitant]
     Indication: Product used for unknown indication
  31. SINIL M [Concomitant]
     Indication: Product used for unknown indication
  32. ALBUMIN HUMAN [Concomitant]
     Active Substance: ALBUMIN HUMAN
     Indication: Product used for unknown indication
  33. GADOBUTROL [Concomitant]
     Active Substance: GADOBUTROL
     Indication: Product used for unknown indication

REACTIONS (3)
  - Septic shock [Fatal]
  - Malignant neoplasm progression [Fatal]
  - Inappropriate schedule of product administration [Unknown]

NARRATIVE: CASE EVENT DATE: 20250301
